FAERS Safety Report 16475493 (Version 1)
Quarter: 2019Q2

REPORT INFORMATION
  Report Type: Spontaneous
  Country: CA (occurrence: CA)
  Receive Date: 20190625
  Receipt Date: 20190625
  Transmission Date: 20190711
  Serious: Yes (Life-Threatening)
  Sender: FDA-Public Use
  Company Number: CA-TEVA-2019-CA-1067648

PATIENT
  Sex: Male

DRUGS (1)
  1. OXYCODONE HYDROCHLORIDE. [Suspect]
     Active Substance: OXYCODONE HYDROCHLORIDE
     Indication: ACCIDENTAL EXPOSURE TO PRODUCT
     Route: 065

REACTIONS (7)
  - Asthenia [Unknown]
  - Product dispensing error [Unknown]
  - Feeling abnormal [Unknown]
  - Accidental overdose [Unknown]
  - Accidental exposure to product [Unknown]
  - Vomiting [Unknown]
  - Electroencephalogram abnormal [Unknown]
